FAERS Safety Report 7311490-9 (Version None)
Quarter: 2011Q1

REPORT INFORMATION
  Report Type: 
  Country: None (occurrence: None)
  Receive Date: 20110224
  Receipt Date: 20110214
  Transmission Date: 20110831
  Serious: Yes (Other)
  Sender: FDA-Public Use
  Company Number: PHHY2011BR12906

PATIENT
  Sex: Female

DRUGS (4)
  1. CARBAMAZEPINE [Suspect]
     Indication: EPILEPSY
     Dosage: 1 DF, BID
     Route: 048
  2. TEGRETOL [Suspect]
     Dosage: 400 MG, 1 TABLET TWICE A DAY
     Route: 048
  3. DIAZEPAM [Concomitant]
     Indication: MALAISE
     Dosage: 1 DF, QD
     Route: 048
  4. TEGRETOL [Suspect]
     Indication: EPILEPSY
     Dosage: 200 MG 1 TABLET TWICE A DAY
     Route: 048

REACTIONS (3)
  - EPILEPSY [None]
  - HIATUS HERNIA [None]
  - BLOOD PRESSURE FLUCTUATION [None]
